FAERS Safety Report 7491804-X (Version None)
Quarter: 2011Q2

REPORT INFORMATION
  Report Type: 
  Country: None (occurrence: None)
  Receive Date: 20110519
  Receipt Date: 20110513
  Transmission Date: 20111010
  Serious: Yes (Disabling)
  Sender: FDA-Public Use
  Company Number: US-MERCK-1105USA02537

PATIENT
  Sex: Female

DRUGS (2)
  1. FOSAMAX [Suspect]
     Route: 048
     Dates: start: 20050301, end: 20090101
  2. FOSAMAX [Suspect]
     Route: 048
     Dates: end: 20090101

REACTIONS (1)
  - FEMUR FRACTURE [None]
